FAERS Safety Report 21334739 (Version 1)
Quarter: 2022Q3

REPORT INFORMATION
  Report Type: Other
  Country: US (occurrence: US)
  Receive Date: 20220914
  Receipt Date: 20220914
  Transmission Date: 20221026
  Serious: No
  Sender: FDA-Public Use
  Company Number: US-LEADIANT BIOSCIENCES INC-2022STPI000116

PATIENT
  Sex: Female

DRUGS (1)
  1. MATULANE [Suspect]
     Active Substance: PROCARBAZINE HYDROCHLORIDE
     Indication: Brain neoplasm malignant
     Dosage: TAKE 1 CAPSULES (50 MG TOTAL), DAILY ON DAYS 8-21 EVERY 42 DAYS
     Route: 048
     Dates: start: 20210618

REACTIONS (1)
  - White blood cell count decreased [Unknown]
